FAERS Safety Report 14972951 (Version 3)
Quarter: 2018Q4

REPORT INFORMATION
  Report Type: Spontaneous
  Country: US (occurrence: US)
  Receive Date: 20180605
  Receipt Date: 20181120
  Transmission Date: 20190204
  Serious: Yes (Other)
  Sender: FDA-Public Use
  Company Number: US-PFIZER INC-2018224760

PATIENT
  Age: 67 Year
  Sex: Female

DRUGS (14)
  1. DILANTIN [Suspect]
     Active Substance: PHENYTOIN
     Dosage: 300 MG, DAILYAT NIGHT
     Route: 048
     Dates: start: 20160926, end: 20160927
  2. LUMINAL [Concomitant]
     Active Substance: PHENOBARBITAL SODIUM
     Indication: SEIZURE
     Dosage: 32.4 MG, 2X/DAY
     Route: 048
     Dates: start: 20101221, end: 20110426
  3. DILANTIN [Suspect]
     Active Substance: PHENYTOIN
     Indication: SEIZURE
     Dosage: 300 MG, 1X/DAY,(BEDTIME)
     Route: 048
     Dates: start: 20110428
  4. DILANTIN [Suspect]
     Active Substance: PHENYTOIN
     Dosage: 200 MG, DAILY EVERY12 HOURS
     Route: 048
     Dates: start: 20111002, end: 20111004
  5. PHENOBARBITAL. [Concomitant]
     Active Substance: PHENOBARBITAL
     Indication: SEIZURE
     Dosage: UNK
     Dates: start: 1966, end: 2014
  6. LUMINAL [Concomitant]
     Active Substance: PHENOBARBITAL SODIUM
     Dosage: 64.8 MG, EVERY MORNING
     Route: 048
     Dates: start: 20110428, end: 20110928
  7. LUMINAL [Concomitant]
     Active Substance: PHENOBARBITAL SODIUM
     Dosage: 129.6 MG, DAILY AT BEDTIME
     Route: 048
     Dates: start: 20110428, end: 20110928
  8. KEPPRA [Concomitant]
     Active Substance: LEVETIRACETAM
     Dosage: 1000 MG, 2X/DAY (EVERY 12 HOURS)
     Route: 048
     Dates: start: 20160927, end: 20160927
  9. DILANTIN [Suspect]
     Active Substance: PHENYTOIN
     Dosage: 300 MG, DAILY AT BEDTIME
     Route: 048
     Dates: start: 20110928, end: 20111002
  10. DILANTIN [Suspect]
     Active Substance: PHENYTOIN
     Indication: IDIOPATHIC GENERALISED EPILEPSY
     Dosage: 200 MG, 2X/DAY
     Route: 048
     Dates: start: 20101221, end: 20101224
  11. KEPPRA [Concomitant]
     Active Substance: LEVETIRACETAM
     Dosage: 500 MG, 2X/DAY
  12. KEPPRA [Concomitant]
     Active Substance: LEVETIRACETAM
     Dosage: 750 MG, 2X/DAY  (EVERY 12 HOURS)
     Route: 048
     Dates: start: 20160929, end: 20160929
  13. DILANTIN [Suspect]
     Active Substance: PHENYTOIN
     Dosage: 2 DF, 2X/DAY
     Route: 048
     Dates: start: 20111129
  14. DILANTIN [Suspect]
     Active Substance: PHENYTOIN
     Dosage: 500 MG, DAILY
     Route: 048
     Dates: start: 20110929, end: 20110929

REACTIONS (3)
  - Cerebellar atrophy [Not Recovered/Not Resolved]
  - Cerebral atrophy [Unknown]
  - Toxicity to various agents [Recovered/Resolved]

NARRATIVE: CASE EVENT DATE: 20110427
